FAERS Safety Report 10584785 (Version 1)
Quarter: 2014Q4

REPORT INFORMATION
  Report Type: Spontaneous
  Country: US (occurrence: None)
  Receive Date: 20141113
  Receipt Date: 20141113
  Transmission Date: 20150529
  Serious: Yes (Hospitalization)
  Sender: FDA-Public Use
  Company Number: IMP_08025_2014

PATIENT
  Age: 60 Year
  Sex: Female

DRUGS (11)
  1. METFORMIN [Concomitant]
     Active Substance: METFORMIN HYDROCHLORIDE
  2. ETODOLAC. [Concomitant]
     Active Substance: ETODOLAC
  3. ROSIGLITAZONE [Concomitant]
     Active Substance: ROSIGLITAZONE
  4. FUROSEMIDE. [Concomitant]
     Active Substance: FUROSEMIDE
  5. METOLAZONE. [Concomitant]
     Active Substance: METOLAZONE
  6. CLONIDINE. [Concomitant]
     Active Substance: CLONIDINE
  7. GABAPENTIN. [Concomitant]
     Active Substance: GABAPENTIN
  8. LEVOTHYROXINE [Concomitant]
     Active Substance: LEVOTHYROXINE
  9. ENALAPRIL [Concomitant]
     Active Substance: ENALAPRIL
  10. PROPOXYPHENE. [Concomitant]
     Active Substance: PROPOXYPHENE HYDROCHLORIDE
  11. DIGOXIN. [Suspect]
     Active Substance: DIGOXIN
     Indication: PRODUCT USED FOR UNKNOWN INDICATION
     Dosage: (DF)

REACTIONS (6)
  - Acute kidney injury [None]
  - Hyperkalaemia [None]
  - Vision blurred [None]
  - Toxicity to various agents [None]
  - Asthenia [None]
  - Bradycardia [None]
